FAERS Safety Report 22181086 (Version 1)
Quarter: 2023Q2

REPORT INFORMATION
  Report Type: Spontaneous
  Country: US (occurrence: None)
  Receive Date: 20230405
  Receipt Date: 20230405
  Transmission Date: 20230722
  Serious: Yes (Life-Threatening, Hospitalization)
  Sender: FDA-Public Use
  Company Number: None

PATIENT
  Age: 57 Year
  Sex: Female
  Weight: 62.6 kg

DRUGS (1)
  1. LUMASON [Suspect]
     Active Substance: SULFUR HEXAFLUORIDE
     Dosage: OTHER FREQUENCY : 1 DOSE;?
     Route: 042
     Dates: start: 20221114, end: 20221114

REACTIONS (6)
  - Wall motion score index abnormal [None]
  - Anaphylactic reaction [None]
  - Contrast media allergy [None]
  - Vascular stent stenosis [None]
  - Coronary artery stenosis [None]
  - Acute coronary syndrome [None]

NARRATIVE: CASE EVENT DATE: 20221114
